FAERS Safety Report 10146206 (Version 1)
Quarter: 2014Q2

REPORT INFORMATION
  Report Type: Report from Study
  Country: DE (occurrence: None)
  Receive Date: 20140429
  Receipt Date: 20140429
  Transmission Date: 20141212
  Serious: Yes (Hospitalization, Other)
  Sender: FDA-Public Use
  Company Number: 2014-19399

PATIENT
  Age: 80 Year
  Sex: Male

DRUGS (1)
  1. EYLEA (AFLIBERCEPT) INJECTION)AFLIBERCEPT) [Suspect]
     Indication: AGE-RELATED MACULAR DEGENERATION
     Route: 031
     Dates: start: 201303, end: 2013

REACTIONS (5)
  - Retinal detachment [None]
  - Ulcerative keratitis [None]
  - Eye pain [None]
  - Intraocular pressure increased [None]
  - Inappropriate schedule of drug administration [None]
